FAERS Safety Report 11031054 (Version 1)
Quarter: 2015Q2

REPORT INFORMATION
  Report Type: Spontaneous
  Country: US (occurrence: US)
  Receive Date: 20150415
  Receipt Date: 20150415
  Transmission Date: 20150821
  Serious: No
  Sender: FDA-Public Use
  Company Number: US-ASTRAZENECA-2015SE16093

PATIENT
  Age: 72 Year
  Sex: Female

DRUGS (1)
  1. PRILOSEC OTC [Suspect]
     Active Substance: OMEPRAZOLE MAGNESIUM
     Route: 048
     Dates: start: 20150209

REACTIONS (3)
  - Pain in extremity [Recovered/Resolved]
  - Musculoskeletal stiffness [Recovered/Resolved]
  - Dysgeusia [Unknown]
